FAERS Safety Report 10152106 (Version 3)
Quarter: 2014Q2

REPORT INFORMATION
  Report Type: Report from Study
  Country: DK (occurrence: DK)
  Receive Date: 20140505
  Receipt Date: 20140515
  Transmission Date: 20141212
  Serious: Yes (Hospitalization, Other)
  Sender: FDA-Public Use
  Company Number: DK-ASTELLAS-2014US003380

PATIENT
  Age: 87 Year
  Sex: Male

DRUGS (4)
  1. ENZALUTAMIDE [Suspect]
     Indication: PROSTATE CANCER
     Route: 048
     Dates: start: 20111114
  2. BETNOVAT                           /00008501/ [Concomitant]
     Indication: RASH PRURITIC
     Dosage: I TIME DAILY ON WHOLE BODY
     Route: 061
     Dates: start: 20140222
  3. ANARTAN [Concomitant]
     Indication: HYPERTENSION
     Route: 048
     Dates: start: 20111208
  4. UNIKALK BASIC [Concomitant]
     Indication: PRODUCT USED FOR UNKNOWN INDICATION
     Route: 065
     Dates: start: 201112

REACTIONS (2)
  - Colon cancer [Recovered/Resolved with Sequelae]
  - Abdominal pain [Recovered/Resolved with Sequelae]
